FAERS Safety Report 12126784 (Version 1)
Quarter: 2016Q1

REPORT INFORMATION
  Report Type: Spontaneous
  Country: CH (occurrence: CH)
  Receive Date: 20160229
  Receipt Date: 20160229
  Transmission Date: 20160526
  Serious: Yes (Other)
  Sender: FDA-Public Use
  Company Number: CH-INDIVIOR LIMITED-INDV-088206-2016

PATIENT
  Age: 0 Year
  Sex: Male
  Weight: 2.9 kg

DRUGS (4)
  1. RIVOTRIL [Suspect]
     Active Substance: CLONAZEPAM
     Dosage: 2MG, DAILY
     Route: 063
     Dates: start: 20151209
  2. RIVOTRIL [Suspect]
     Active Substance: CLONAZEPAM
     Indication: DRUG DEPENDENCE
     Dosage: 2MG, DAILY
     Route: 064
     Dates: start: 201504, end: 20151209
  3. SUBUTEX [Suspect]
     Active Substance: BUPRENORPHINE HYDROCHLORIDE
     Indication: DRUG DEPENDENCE
     Dosage: 12MG, DAILY
     Route: 064
     Dates: start: 201504, end: 20151209
  4. SUBUTEX [Suspect]
     Active Substance: BUPRENORPHINE HYDROCHLORIDE
     Dosage: 12MG, DAILY
     Route: 063
     Dates: start: 20151209

REACTIONS (8)
  - Drug withdrawal syndrome neonatal [Unknown]
  - Hypertonia neonatal [Recovering/Resolving]
  - Irritability [Recovering/Resolving]
  - Neonatal behavioural syndrome [Recovering/Resolving]
  - Nervousness [Unknown]
  - Exposure during breast feeding [Not Recovered/Not Resolved]
  - Premature baby [Recovered/Resolved]
  - Foetal exposure during pregnancy [Recovered/Resolved]

NARRATIVE: CASE EVENT DATE: 201504
